FAERS Safety Report 7611555-8 (Version None)
Quarter: 2011Q3

REPORT INFORMATION
  Report Type: 
  Country: None (occurrence: None)
  Receive Date: 20110715
  Receipt Date: 20110622
  Transmission Date: 20111222
  Serious: Yes (Hospitalization)
  Sender: FDA-Public Use
  Company Number: US-GLAXOSMITHKLINE-A0869284A

PATIENT
  Age: 66 Year
  Sex: Male
  Weight: 74.1 kg

DRUGS (4)
  1. DILACOR XR [Concomitant]
  2. TENORETIC [Concomitant]
  3. AMARYL [Concomitant]
  4. AVANDIA [Suspect]
     Indication: DIABETES MELLITUS
     Dosage: 4MG PER DAY
     Route: 048
     Dates: start: 19980101, end: 20080101

REACTIONS (3)
  - MYOCARDIAL INFARCTION [None]
  - CORONARY ARTERY DISEASE [None]
  - ANGINA UNSTABLE [None]
